FAERS Safety Report 23098949 (Version 1)
Quarter: 2023Q4

REPORT INFORMATION
  Report Type: Spontaneous
  Country: US (occurrence: US)
  Receive Date: 20231024
  Receipt Date: 20231024
  Transmission Date: 20240110
  Serious: No
  Sender: FDA-Public Use
  Company Number: US-JNJFOC-20231018449

PATIENT
  Age: 32 Year

DRUGS (1)
  1. ZYRTEC [Suspect]
     Active Substance: CETIRIZINE HYDROCHLORIDE
     Indication: Product used for unknown indication
     Dosage: I TOOK ONE 10MG ZYRTEC IN THE AFTERNOON 2:00PM AND ANOTHER ONE 10MG AT 9:30PM
     Route: 065

REACTIONS (1)
  - Overdose [Unknown]
